FAERS Safety Report 24385869 (Version 1)
Quarter: 2024Q4

REPORT INFORMATION
  Report Type: Spontaneous
  Country: US (occurrence: None)
  Receive Date: 20241001
  Receipt Date: 20241001
  Transmission Date: 20250114
  Serious: Yes (Other)
  Sender: Public
  Company Number: None

PATIENT
  Age: 26 Year
  Sex: Female
  Weight: 45 kg

DRUGS (2)
  1. LINZESS [Suspect]
     Active Substance: LINACLOTIDE
     Indication: Irritable bowel syndrome
     Dosage: 1 CAPSULE ORAL ?
     Route: 048
  2. LINZESS [Suspect]
     Active Substance: LINACLOTIDE
     Indication: Constipation

REACTIONS (11)
  - Muscle spasms [None]
  - Nausea [None]
  - Diarrhoea [None]
  - Decreased appetite [None]
  - Lethargy [None]
  - Asthenia [None]
  - Breath odour [None]
  - Gastrooesophageal reflux disease [None]
  - Condition aggravated [None]
  - Abdominal distension [None]
  - Feeling abnormal [None]

NARRATIVE: CASE EVENT DATE: 20240927
